FAERS Safety Report 5565484-4 (Version None)
Quarter: 2007Q4

REPORT INFORMATION
  Report Type: 
  Country: None (occurrence: None)
  Receive Date: 20071218
  Receipt Date: 20071206
  Transmission Date: 20080405
  Serious: Yes (Other)
  Sender: FDA-Public Use
  Company Number: JP-PFIZER INC-2007095517

PATIENT
  Age: 73 Year
  Sex: Male

DRUGS (4)
  1. NORVASC [Suspect]
     Dosage: DAILY DOSE:10MG
     Route: 048
  2. CARDENALIN [Suspect]
     Dosage: DAILY DOSE:2MG
     Route: 048
  3. ALL OTHER THERAPEUTIC PRODUCTS [Suspect]
  4. MICARDIS [Concomitant]
     Route: 048

REACTIONS (1)
  - PULMONARY ALVEOLAR HAEMORRHAGE [None]
